FAERS Safety Report 15284044 (Version 1)
Quarter: 2018Q3

REPORT INFORMATION
  Report Type: Spontaneous
  Country: IT (occurrence: IT)
  Receive Date: 20180816
  Receipt Date: 20180816
  Transmission Date: 20181010
  Serious: Yes (Other)
  Sender: FDA-Public Use
  Company Number: IT-ELI_LILLY_AND_COMPANY-IT201808003243

PATIENT
  Age: 11 Year
  Sex: Female
  Weight: 62 kg

DRUGS (2)
  1. HUMALOG [Suspect]
     Active Substance: INSULIN LISPRO
     Indication: TYPE 1 DIABETES MELLITUS
     Dosage: 25 IU, DAILY
     Route: 058
     Dates: start: 20171212
  2. LANTUS [Suspect]
     Active Substance: INSULIN GLARGINE
     Indication: TYPE 1 DIABETES MELLITUS
     Dosage: 28 IU, DAILY
     Route: 058
     Dates: start: 20171212

REACTIONS (3)
  - Abdominal pain [Recovering/Resolving]
  - Weight decreased [Recovering/Resolving]
  - Dawn phenomenon [Recovering/Resolving]

NARRATIVE: CASE EVENT DATE: 20180201
